FAERS Safety Report 4599991-8 (Version None)
Quarter: 2005Q1

REPORT INFORMATION
  Report Type: 
  Country: None (occurrence: None)
  Receive Date: 20050304
  Receipt Date: 20050304
  Transmission Date: 20050727
  Serious: Yes (Other)
  Sender: FDA-Public Use
  Company Number: None

PATIENT
  Age: 83 Year
  Sex: Female
  Weight: 74.8435 kg

DRUGS (2)
  1. SANCTURA [Suspect]
     Indication: STRESS INCONTINENCE
     Dosage: 20 MG 2X DAY
     Dates: start: 20050105, end: 20050217
  2. METFORMIN HCL [Suspect]
     Indication: DIABETES MELLITUS NON-INSULIN-DEPENDENT
     Dosage: 500 MG 2X DAY

REACTIONS (9)
  - BALANCE DISORDER [None]
  - CONFUSIONAL STATE [None]
  - DEPRESSION [None]
  - DIFFICULTY IN WALKING [None]
  - DIZZINESS [None]
  - DRY MOUTH [None]
  - FATIGUE [None]
  - SOMNOLENCE [None]
  - VISION BLURRED [None]
